FAERS Safety Report 5640909-4 (Version None)
Quarter: 2008Q1

REPORT INFORMATION
  Report Type: 
  Country: None (occurrence: None)
  Receive Date: 20080227
  Receipt Date: 20080222
  Transmission Date: 20080703
  Serious: Yes (Other)
  Sender: FDA-Public Use
  Company Number: D0056243A

PATIENT

DRUGS (1)
  1. VIANI [Suspect]
     Route: 065

REACTIONS (1)
  - VENOUS THROMBOSIS [None]
